FAERS Safety Report 19615759 (Version 1)
Quarter: 2021Q3

REPORT INFORMATION
  Report Type: Spontaneous
  Country: CN (occurrence: CN)
  Receive Date: 20210727
  Receipt Date: 20210727
  Transmission Date: 20211014
  Serious: Yes (Hospitalization)
  Sender: FDA-Public Use
  Company Number: CN-PFIZER INC-2021888275

PATIENT
  Age: 55 Year
  Sex: Male
  Weight: 55 kg

DRUGS (5)
  1. SODIUM CHLORIDE. [Concomitant]
     Active Substance: SODIUM CHLORIDE
     Indication: VEHICLE SOLUTION USE
     Dosage: 100.000 ML, 1X/DAY
     Route: 041
     Dates: start: 20210609, end: 20210615
  2. CYTARABINE. [Suspect]
     Active Substance: CYTARABINE
     Indication: ACUTE LEUKAEMIA
     Dosage: 25 MG, 1X/DAY
     Route: 041
     Dates: start: 20210616, end: 20210624
  3. EPIRUBICIN HCL [Suspect]
     Active Substance: EPIRUBICIN HYDROCHLORIDE
     Indication: ACUTE LEUKAEMIA
     Dosage: 20 MG ONCE IN 2 DAYS
     Route: 041
     Dates: start: 20210616, end: 20210624
  4. SODIUM CHLORIDE. [Concomitant]
     Active Substance: SODIUM CHLORIDE
     Dosage: 100.000 ML, 1X/DAY
     Route: 041
     Dates: start: 20210616, end: 20210624
  5. AZACITIDINE. [Suspect]
     Active Substance: AZACITIDINE
     Indication: ACUTE LEUKAEMIA
     Dosage: 100.000 MG, 1X/DAY
     Route: 041
     Dates: start: 20210609, end: 20210615

REACTIONS (1)
  - Full blood count decreased [Unknown]

NARRATIVE: CASE EVENT DATE: 20210627
